FAERS Safety Report 12785560 (Version 3)
Quarter: 2017Q1

REPORT INFORMATION
  Report Type: Spontaneous
  Country: JP (occurrence: JP)
  Receive Date: 20160927
  Receipt Date: 20170207
  Transmission Date: 20170428
  Serious: Yes (Death, Hospitalization)
  Sender: FDA-Public Use
  Company Number: JP-ELI_LILLY_AND_COMPANY-JP201608010792

PATIENT
  Age: 66 Year
  Sex: Male
  Weight: 60 kg

DRUGS (2)
  1. CYRAMZA [Suspect]
     Active Substance: RAMUCIRUMAB
     Indication: GASTRIC CANCER RECURRENT
     Dosage: 480 MG, UNK
     Route: 042
     Dates: start: 20160812, end: 20160812
  2. PACLITAXEL. [Suspect]
     Active Substance: PACLITAXEL
     Indication: GASTRIC CANCER RECURRENT
     Dosage: 100 MG, UNK
     Route: 042
     Dates: start: 20160812, end: 20160812

REACTIONS (3)
  - Anaemia [Not Recovered/Not Resolved]
  - Malignant neoplasm progression [Fatal]
  - Platelet count decreased [Not Recovered/Not Resolved]

NARRATIVE: CASE EVENT DATE: 20160815
